FAERS Safety Report 16764111 (Version 1)
Quarter: 2019Q3

REPORT INFORMATION
  Report Type: Spontaneous
  Country: CN (occurrence: CN)
  Receive Date: 20190902
  Receipt Date: 20190902
  Transmission Date: 20191005
  Serious: Yes (Death, Hospitalization)
  Sender: FDA-Public Use
  Company Number: CN-ACTELION-A-CH2019-195042

PATIENT
  Age: 25 Day
  Weight: 3.6 kg

DRUGS (2)
  1. BOSENTAN. [Suspect]
     Active Substance: BOSENTAN
     Indication: CONGENITAL CARDIOVASCULAR ANOMALY
     Dosage: 7.2 MG, BID
     Route: 048
  2. ILOPROST. [Suspect]
     Active Substance: ILOPROST
     Indication: PULMONARY ARTERIAL HYPERTENSION
     Dosage: 1800 MCG, 6-8 TIMES Q DAY

REACTIONS (2)
  - Death [Fatal]
  - Dyspnoea [Unknown]
